FAERS Safety Report 4745459-5 (Version None)
Quarter: 2005Q3

REPORT INFORMATION
  Report Type: 
  Country: None (occurrence: None)
  Receive Date: 20050812
  Receipt Date: 20050802
  Transmission Date: 20060218
  Serious: Yes (Other)
  Sender: FDA-Public Use
  Company Number: 216658

PATIENT
  Sex: Female

DRUGS (3)
  1. AVASTIN [Suspect]
     Indication: METASTATIC RENAL CELL CARCINOMA
     Dosage: Q2W
  2. ROXICET (OXYCODONE HYDROCHLORIDE , ACETAMINOPHEN) [Concomitant]
  3. LORAZEPAM [Concomitant]

REACTIONS (3)
  - BLOOD PRESSURE INCREASED [None]
  - REVERSIBLE POSTERIOR LEUKOENCEPHALOPATHY SYNDROME [None]
  - SEPSIS [None]
